FAERS Safety Report 16957312 (Version 2)
Quarter: 2019Q4

REPORT INFORMATION
  Report Type: Spontaneous
  Country: NL (occurrence: NL)
  Receive Date: 20191024
  Receipt Date: 20191125
  Transmission Date: 20200122
  Serious: Yes (Other)
  Sender: FDA-Public Use
  Company Number: NL-JNJFOC-20191020102

PATIENT
  Age: 16 Year
  Sex: Female

DRUGS (1)
  1. RIVAROXABAN [Suspect]
     Active Substance: RIVAROXABAN
     Indication: MALFORMATION VENOUS
     Dosage: UNK
     Route: 048
     Dates: start: 20190701

REACTIONS (4)
  - Palpitations [Unknown]
  - Anaemia [Unknown]
  - Fatigue [Unknown]
  - Product prescribing issue [Unknown]
